FAERS Safety Report 6271041 (Version 3)
Quarter: 2013Q2

REPORT INFORMATION
  Report Type: Spontaneous
  Country: JP (occurrence: JP)
  Receive Date: 20070326
  Receipt Date: 20130620
  Transmission Date: 20140414
  Serious: Yes (Death, Hospitalization)
  Sender: FDA-Public Use
  Company Number: JP-PFIZER INC-2007015779

PATIENT
  Age: 70 Year
  Sex: Male
  Weight: 70.6 kg

DRUGS (8)
  1. CABASER [Suspect]
     Indication: PARKINSON^S DISEASE
     Dosage: 1 MG, 1X/DAY
     Route: 048
     Dates: start: 20050422, end: 20050519
  2. CABASER [Suspect]
     Dosage: 2 MG, 1X/DAY
     Dates: start: 20050520, end: 20060413
  3. CABASER [Suspect]
     Dosage: 3 MG, 1X/DAY
     Dates: start: 20060414, end: 20070112
  4. MADOPAR [Concomitant]
     Indication: PARKINSON^S DISEASE
     Dosage: 100 MG, 2X/DAY
     Route: 048
     Dates: start: 20050329
  5. ARTANE [Concomitant]
     Indication: PARKINSON^S DISEASE
     Dosage: 1 MG, 2X/DAY
     Route: 048
     Dates: start: 20050408
  6. ETIZOLAM [Concomitant]
     Indication: MUSCULOSKELETAL STIFFNESS
     Route: 048
     Dates: start: 20050520
  7. ETIZOLAM [Concomitant]
     Indication: HEADACHE
  8. PRAMIPEXOLE [Concomitant]
     Indication: PARKINSON^S DISEASE
     Dosage: 1.5 MG, 3X/DAY
     Route: 048
     Dates: start: 20070112, end: 20070214

REACTIONS (4)
  - Pleural effusion [Fatal]
  - Pleurisy [Fatal]
  - Pneumonia [Fatal]
  - Pleural fibrosis [Fatal]
